FAERS Safety Report 25082933 (Version 2)
Quarter: 2025Q1

REPORT INFORMATION
  Report Type: Spontaneous
  Country: US (occurrence: US)
  Receive Date: 20250317
  Receipt Date: 20250326
  Transmission Date: 20250409
  Serious: No
  Sender: ROCHE
  Company Number: US-ROCHE-10000228536

PATIENT
  Age: 71 Year
  Sex: Male

DRUGS (20)
  1. XOLAIR PFS [Suspect]
     Active Substance: OMALIZUMAB
     Indication: Asthma
     Dosage: 75 MG 0.5 ML
     Route: 058
  2. XOLAIR PFS [Suspect]
     Active Substance: OMALIZUMAB
     Dosage: 75 MG 0.5 ML
     Route: 058
  3. ALBUTEROL [Concomitant]
     Active Substance: ALBUTEROL
  4. ATORVASTATIN [Concomitant]
     Active Substance: ATORVASTATIN
  5. AZITHROMYCIN [Concomitant]
     Active Substance: AZITHROMYCIN
  6. CETIRIZINE H TAB [Concomitant]
  7. DOXAZOCIN ME POW [Concomitant]
  8. FERROUS SULFATE TBE 324 [Concomitant]
  9. FLUTICASONE [Concomitant]
     Active Substance: FLUTICASONE
  10. GUAIFENESIN POW [Concomitant]
  11. Hydroxyzine TAB [Concomitant]
  12. METFORMIN [Concomitant]
     Active Substance: METFORMIN HYDROCHLORIDE
  13. Mirtazapine POW [Concomitant]
  14. NICOTINE PT2 [Concomitant]
  15. Potassium CH POW [Concomitant]
  16. preservision cap [Concomitant]
  17. singulair tab [Concomitant]
  18. spiriva hand cap [Concomitant]
  19. symbicort AER 160 [Concomitant]
  20. XYLIMELTS DIS [Concomitant]

REACTIONS (3)
  - Injection site pain [Recovered/Resolved]
  - Syringe issue [Unknown]
  - Injection related reaction [Unknown]

NARRATIVE: CASE EVENT DATE: 20250201
